FAERS Safety Report 7455085-5 (Version None)
Quarter: 2011Q2

REPORT INFORMATION
  Report Type: 
  Country: None (occurrence: None)
  Receive Date: 20110503
  Receipt Date: 20110405
  Transmission Date: 20111010
  Serious: Yes (Hospitalization, Other)
  Sender: FDA-Public Use
  Company Number: US-BAYER-201039152NA

PATIENT
  Sex: Female
  Weight: 61 kg

DRUGS (6)
  1. ANTIBIOTICS [Concomitant]
  2. NSAID'S [Concomitant]
     Dosage: UNK
     Dates: start: 20000101, end: 20070101
  3. YASMIN [Suspect]
     Indication: PRODUCT USED FOR UNKNOWN INDICATION
     Dosage: UNK
     Route: 048
     Dates: start: 20030101, end: 20070101
  4. YAZ [Suspect]
     Indication: PRODUCT USED FOR UNKNOWN INDICATION
     Dosage: UNK
     Route: 048
     Dates: start: 20030101, end: 20070101
  5. VITAMIN C [Concomitant]
     Dosage: UNK
     Dates: start: 20080101
  6. VITAMIN C [Concomitant]
     Dosage: UNK
     Dates: start: 20000101, end: 20070101

REACTIONS (10)
  - DEEP VEIN THROMBOSIS [None]
  - HIATUS HERNIA [None]
  - PULMONARY EMBOLISM [None]
  - GALLBLADDER DISORDER [None]
  - CHOLELITHIASIS [None]
  - DYSPNOEA [None]
  - UMBILICAL HERNIA [None]
  - PAIN [None]
  - PRESYNCOPE [None]
  - GALLBLADDER NON-FUNCTIONING [None]
